FAERS Safety Report 19304108 (Version 15)
Quarter: 2022Q1

REPORT INFORMATION
  Report Type: Report from Study
  Country: BR (occurrence: BR)
  Receive Date: 20210525
  Receipt Date: 20220128
  Transmission Date: 20220424
  Serious: Yes (Hospitalization, Other)
  Sender: FDA-Public Use
  Company Number: NVSC2021BR109956

PATIENT
  Sex: Female
  Weight: 98 kg

DRUGS (20)
  1. KISQALI [Suspect]
     Active Substance: RIBOCICLIB
     Indication: Breast cancer
     Dosage: UNK
     Route: 065
     Dates: start: 202103
  2. KISQALI [Suspect]
     Active Substance: RIBOCICLIB
     Dosage: UNK
     Route: 048
     Dates: start: 20210324
  3. KISQALI [Suspect]
     Active Substance: RIBOCICLIB
     Dosage: 3 DF (2 TABLETS OF 200 MG, 21 DAYS CYCLE AND 7 DAYS PAUSE)
     Route: 048
  4. KISQALI [Suspect]
     Active Substance: RIBOCICLIB
     Dosage: 3 DF (3 TABLETS 20 PM)
     Route: 065
  5. KISQALI [Suspect]
     Active Substance: RIBOCICLIB
     Dosage: QD
     Route: 065
     Dates: start: 20210326
  6. ZOMETA [Suspect]
     Active Substance: ZOLEDRONIC ACID
     Indication: Menopause
     Dosage: UNK
     Route: 065
     Dates: start: 202103
  7. ZOMETA [Suspect]
     Active Substance: ZOLEDRONIC ACID
     Dosage: UNK
     Route: 065
     Dates: start: 20210324
  8. ZOMETA [Suspect]
     Active Substance: ZOLEDRONIC ACID
     Dosage: UNK, QMO
     Route: 065
     Dates: start: 20210326
  9. ZOMETA [Suspect]
     Active Substance: ZOLEDRONIC ACID
     Dosage: Q3MO
     Route: 065
  10. LETROZOLE [Concomitant]
     Active Substance: LETROZOLE
     Indication: Product used for unknown indication
     Dosage: UNK
     Route: 048
     Dates: start: 20210324
  11. LETROZOLE [Concomitant]
     Active Substance: LETROZOLE
     Dosage: UNK
     Route: 048
     Dates: start: 20210326
  12. LETROZOLE [Concomitant]
     Active Substance: LETROZOLE
     Dosage: UNK (BY THE MORNING)
     Route: 065
     Dates: start: 20210326
  13. FEMARA [Concomitant]
     Active Substance: LETROZOLE
     Indication: Product used for unknown indication
     Dosage: UNK 10AM
     Route: 065
  14. FEMARA [Concomitant]
     Active Substance: LETROZOLE
     Dosage: UNK
     Route: 065
     Dates: start: 20210324
  15. FEMARA [Concomitant]
     Active Substance: LETROZOLE
     Dosage: UNK
     Route: 065
     Dates: start: 20210326
  16. CALCIUM [Concomitant]
     Active Substance: CALCIUM
     Indication: Product used for unknown indication
     Dosage: UNK, Q3MO
     Route: 065
     Dates: start: 202103
  17. CALCIUM [Concomitant]
     Active Substance: CALCIUM
     Dosage: UNK
     Route: 065
     Dates: start: 20210324
  18. ZOLADEX [Concomitant]
     Active Substance: GOSERELIN ACETATE
     Indication: Product used for unknown indication
     Dosage: UNK
     Route: 065
  19. ZOLADEX [Concomitant]
     Active Substance: GOSERELIN ACETATE
     Dosage: UNK (EVERY 30 DAYS)
     Route: 065
     Dates: start: 20210326
  20. ACETAMINOPHEN [Concomitant]
     Active Substance: ACETAMINOPHEN
     Indication: Product used for unknown indication
     Dosage: UNK
     Route: 065

REACTIONS (73)
  - Pain [Unknown]
  - Discomfort [Unknown]
  - Brain neoplasm [Unknown]
  - Decreased immune responsiveness [Unknown]
  - Immunodeficiency [Unknown]
  - Hip fracture [Unknown]
  - Vein rupture [Unknown]
  - Metastases to bone [Unknown]
  - Neoplasm malignant [Unknown]
  - Cancer in remission [Unknown]
  - Vaginal disorder [Not Recovered/Not Resolved]
  - Ageusia [Unknown]
  - Memory impairment [Not Recovered/Not Resolved]
  - Injection site pain [Unknown]
  - Irritability [Unknown]
  - Somnolence [Unknown]
  - Stress [Unknown]
  - Fluid imbalance [Not Recovered/Not Resolved]
  - Swelling [Not Recovered/Not Resolved]
  - Fluid retention [Not Recovered/Not Resolved]
  - Dry skin [Not Recovered/Not Resolved]
  - Dysgeusia [Unknown]
  - Nausea [Unknown]
  - Vomiting [Unknown]
  - Fatigue [Unknown]
  - Peripheral swelling [Not Recovered/Not Resolved]
  - Illness [Unknown]
  - Bone pain [Unknown]
  - Vein disorder [Unknown]
  - Abdominal discomfort [Unknown]
  - Lung disorder [Unknown]
  - Pallor [Unknown]
  - Ill-defined disorder [Unknown]
  - Groin pain [Unknown]
  - Overweight [Unknown]
  - Sensitive skin [Unknown]
  - Muscle spasms [Not Recovered/Not Resolved]
  - Paraesthesia [Not Recovered/Not Resolved]
  - Vulvovaginal dryness [Not Recovered/Not Resolved]
  - Temperature intolerance [Not Recovered/Not Resolved]
  - Sexual dysfunction [Unknown]
  - Mood swings [Not Recovered/Not Resolved]
  - Dark circles under eyes [Unknown]
  - Feeling abnormal [Unknown]
  - Nail disorder [Unknown]
  - Axillary pain [Unknown]
  - Product use in unapproved indication [Unknown]
  - Malaise [Unknown]
  - Arthralgia [Unknown]
  - Hot flush [Unknown]
  - Muscle atrophy [Unknown]
  - Mass [Unknown]
  - Inappropriate schedule of product administration [Recovered/Resolved]
  - Dry mouth [Not Recovered/Not Resolved]
  - Back pain [Not Recovered/Not Resolved]
  - Rash [Not Recovered/Not Resolved]
  - Diarrhoea [Unknown]
  - Pruritus [Not Recovered/Not Resolved]
  - Burning sensation [Not Recovered/Not Resolved]
  - Dehydration [Unknown]
  - Weight decreased [Unknown]
  - Pain in extremity [Unknown]
  - Movement disorder [Unknown]
  - Feeding disorder [Unknown]
  - Gastrointestinal pain [Unknown]
  - Migraine [Unknown]
  - Exostosis [Unknown]
  - Benign breast neoplasm [Not Recovered/Not Resolved]
  - Abdominal tenderness [Unknown]
  - Skin irritation [Recovered/Resolved]
  - Asthenia [Unknown]
  - Headache [Unknown]
  - Drug ineffective [Unknown]

NARRATIVE: CASE EVENT DATE: 20210101
